FAERS Safety Report 4942020-4 (Version None)
Quarter: 2006Q1

REPORT INFORMATION
  Report Type: 
  Country: None (occurrence: None)
  Receive Date: 20060313
  Receipt Date: 20050714
  Transmission Date: 20060701
  Serious: Yes (Hospitalization)
  Sender: FDA-Public Use
  Company Number: US-MERCK-0507USA02052

PATIENT
  Age: 60 Year
  Sex: Male

DRUGS (1)
  1. VIOXX [Suspect]
     Route: 048
     Dates: start: 20030801, end: 20040901

REACTIONS (5)
  - ACUTE MYOCARDIAL INFARCTION [None]
  - ANAEMIA [None]
  - CORONARY ARTERY DISEASE [None]
  - SINUS BRADYCARDIA [None]
  - VENTRICULAR DYSFUNCTION [None]
